APPROVED DRUG PRODUCT: SULFACETAMIDE SODIUM
Active Ingredient: SULFACETAMIDE SODIUM
Strength: 10%
Dosage Form/Route: LOTION;TOPICAL
Application: A078649 | Product #001 | TE Code: AB
Applicant: PADAGIS US LLC
Approved: Mar 23, 2009 | RLD: No | RS: No | Type: RX